FAERS Safety Report 4549735-0 (Version None)
Quarter: 2005Q1

REPORT INFORMATION
  Report Type: 
  Country: None (occurrence: None)
  Receive Date: 20050110
  Receipt Date: 20041228
  Transmission Date: 20050727
  Serious: Yes (Hospitalization, Other)
  Sender: FDA-Public Use
  Company Number: 2004-BP-14391RO

PATIENT

DRUGS (1)
  1. CYCLOPHOSPHAMIDE [Suspect]
     Indication: EYE INFLAMMATION
     Dosage: 1 G/M2 Q 3-4 WEEKS (EVERY 3 TO 4 WEEKS), IV
     Route: 042

REACTIONS (30)
  - ABDOMINAL PAIN [None]
  - ALANINE AMINOTRANSFERASE INCREASED [None]
  - BEHCET'S SYNDROME [None]
  - DEHYDRATION [None]
  - DEPRESSION [None]
  - DIARRHOEA [None]
  - DISEASE PROGRESSION [None]
  - DISEASE RECURRENCE [None]
  - DIZZINESS [None]
  - DRUG INTOLERANCE [None]
  - DYSPEPSIA [None]
  - DYSPNOEA [None]
  - EOSINOPHILIA [None]
  - EYE DISORDER [None]
  - EYE INFLAMMATION [None]
  - FATIGUE [None]
  - HEADACHE [None]
  - INFUSION RELATED REACTION [None]
  - LEUKOPENIA [None]
  - NAUSEA [None]
  - NECROTISING SCLERITIS [None]
  - NEUTROPHIL COUNT DECREASED [None]
  - PEMPHIGOID [None]
  - PLATELET COUNT DECREASED [None]
  - PROCEDURAL COMPLICATION [None]
  - RETINAL DISORDER [None]
  - RHEUMATOID ARTHRITIS [None]
  - SYSTEMIC LUPUS ERYTHEMATOSUS [None]
  - THERAPY NON-RESPONDER [None]
  - UPPER RESPIRATORY TRACT INFECTION [None]
